FAERS Safety Report 20451729 (Version 10)
Quarter: 2025Q2

REPORT INFORMATION
  Report Type: Report from Study
  Country: CA (occurrence: CA)
  Receive Date: 20220209
  Receipt Date: 20250616
  Transmission Date: 20250717
  Serious: Yes (Hospitalization, Other)
  Sender: TAKEDA
  Company Number: CA-TAKEDA-2020TUS018497

PATIENT
  Sex: Female

DRUGS (36)
  1. VEDOLIZUMAB [Suspect]
     Active Substance: VEDOLIZUMAB
     Indication: Crohn^s disease
  2. VEDOLIZUMAB [Suspect]
     Active Substance: VEDOLIZUMAB
  3. VEDOLIZUMAB [Suspect]
     Active Substance: VEDOLIZUMAB
  4. VEDOLIZUMAB [Suspect]
     Active Substance: VEDOLIZUMAB
  5. VEDOLIZUMAB [Suspect]
     Active Substance: VEDOLIZUMAB
  6. VEDOLIZUMAB [Suspect]
     Active Substance: VEDOLIZUMAB
  7. VEDOLIZUMAB [Suspect]
     Active Substance: VEDOLIZUMAB
  8. VEDOLIZUMAB [Suspect]
     Active Substance: VEDOLIZUMAB
     Dosage: 300 MILLIGRAM, Q4WEEKS
     Dates: start: 20220107
  9. VEDOLIZUMAB [Suspect]
     Active Substance: VEDOLIZUMAB
     Dosage: 300 MILLIGRAM, Q4WEEKS
  10. VEDOLIZUMAB [Suspect]
     Active Substance: VEDOLIZUMAB
     Dosage: 300 MILLIGRAM, Q4WEEKS
  11. VEDOLIZUMAB [Suspect]
     Active Substance: VEDOLIZUMAB
     Dosage: 300 MILLIGRAM, Q4WEEKS
  12. VEDOLIZUMAB [Suspect]
     Active Substance: VEDOLIZUMAB
     Dosage: 300 MILLIGRAM, Q4WEEKS
  13. VEDOLIZUMAB [Suspect]
     Active Substance: VEDOLIZUMAB
     Dosage: 300 MILLIGRAM, Q4WEEKS
  14. VEDOLIZUMAB [Suspect]
     Active Substance: VEDOLIZUMAB
     Dosage: 300 MILLIGRAM, Q4WEEKS
  15. VEDOLIZUMAB [Suspect]
     Active Substance: VEDOLIZUMAB
     Dosage: 300 MILLIGRAM, Q4WEEKS
  16. ENTOCORT [Concomitant]
     Active Substance: BUDESONIDE
  17. CITALOPRAM [Concomitant]
     Active Substance: CITALOPRAM
  18. LYRICA [Concomitant]
     Active Substance: PREGABALIN
     Indication: Back pain
  19. ACETAMINOPHEN [Concomitant]
     Active Substance: ACETAMINOPHEN
     Indication: Premedication
  20. SOLU-CORTEF [Concomitant]
     Active Substance: HYDROCORTISONE SODIUM SUCCINATE
     Indication: Premedication
  21. PREGABALIN [Concomitant]
     Active Substance: PREGABALIN
  22. SUCRALFATE [Concomitant]
     Active Substance: SUCRALFATE
  23. SERTRALINE HYDROCHLORIDE [Concomitant]
     Active Substance: SERTRALINE HYDROCHLORIDE
  24. DEXTRIN [Concomitant]
     Active Substance: ICODEXTRIN
  25. LINACLOTIDE [Concomitant]
     Active Substance: LINACLOTIDE
  26. FAMOTIDINE [Concomitant]
     Active Substance: FAMOTIDINE
  27. TRAMADOL [Concomitant]
     Active Substance: TRAMADOL
  28. FOLIC ACID [Concomitant]
     Active Substance: FOLIC ACID
  29. MAGNESIUM [Concomitant]
     Active Substance: MAGNESIUM
  30. POTASSIUM [Concomitant]
     Active Substance: POTASSIUM
  31. Cal [Concomitant]
  32. OMEGA 3 [Concomitant]
     Active Substance: CAPSAICIN
  33. VITAMIN D [Concomitant]
     Active Substance: VITAMIN D NOS
  34. MELATONIN [Concomitant]
     Active Substance: MELATONIN
  35. PREDNISONE [Concomitant]
     Active Substance: PREDNISONE
  36. PANTOPRAZOLE [Concomitant]
     Active Substance: PANTOPRAZOLE

REACTIONS (11)
  - Oxygen saturation decreased [Not Recovered/Not Resolved]
  - Dehydration [Not Recovered/Not Resolved]
  - Malignant splenic neoplasm [Not Recovered/Not Resolved]
  - Crohn^s disease [Unknown]
  - Gastrointestinal inflammation [Unknown]
  - Frequent bowel movements [Unknown]
  - Procedural pain [Not Recovered/Not Resolved]
  - Drug ineffective [Unknown]
  - Ocular hyperaemia [Not Recovered/Not Resolved]
  - Goitre [Not Recovered/Not Resolved]
  - Lymphadenopathy [Not Recovered/Not Resolved]
